FAERS Safety Report 6943069-2 (Version None)
Quarter: 2010Q3

REPORT INFORMATION
  Report Type: 
  Country: None (occurrence: None)
  Receive Date: 20100826
  Receipt Date: 20100819
  Transmission Date: 20110219
  Serious: Yes (Other)
  Sender: FDA-Public Use
  Company Number: PT-BRISTOL-MYERS SQUIBB COMPANY-15249832

PATIENT
  Age: 34 Year
  Sex: Female

DRUGS (7)
  1. ABILIFY [Suspect]
     Indication: BIPOLAR DISORDER
     Route: 048
     Dates: start: 20071001
  2. LITHIUM CARBONATE [Concomitant]
     Dosage: 1 DF= 400(UNITS NOT SPECIFIED)
     Dates: start: 20060801
  3. LAMOTRIGINE [Concomitant]
     Dates: start: 20061101, end: 20080601
  4. PROPRANOLOL [Concomitant]
     Dates: start: 20080601
  5. ALPRAZOLAM [Concomitant]
  6. FLUOXETINE [Concomitant]
     Dates: start: 20080601, end: 20080801
  7. CLONAZEPAM [Concomitant]
     Dates: start: 20080801

REACTIONS (10)
  - AFFECT LABILITY [None]
  - ANXIETY [None]
  - BINGE EATING [None]
  - EXTRAPYRAMIDAL DISORDER [None]
  - HYPOMANIA [None]
  - MERYCISM [None]
  - RECTAL HAEMORRHAGE [None]
  - SOCIAL PHOBIA [None]
  - SUICIDAL IDEATION [None]
  - TREMOR [None]
